FAERS Safety Report 9457482 (Version 6)
Quarter: 2013Q4

REPORT INFORMATION
  Report Type: Spontaneous
  Country: GB (occurrence: None)
  Receive Date: 20130812
  Receipt Date: 20131129
  Transmission Date: 20140711
  Serious: Yes (Death, Life-Threatening, Hospitalization)
  Sender: FDA-Public Use
  Company Number: SYM-2013-07907

PATIENT
  Age: 61 Year
  Sex: Male

DRUGS (11)
  1. 5 FU [Suspect]
     Indication: COLORECTAL CANCER METASTATIC
     Route: 040
     Dates: start: 20130124, end: 20130124
  2. IRINOTECAN [Suspect]
     Indication: COLORECTAL CANCER METASTATIC
     Route: 041
     Dates: start: 20130124, end: 20130124
  3. LEUCOVORIN (FOLINIC ACID) (SOLUTION FOR INFUSION) (FOLINIC ACID) [Suspect]
     Indication: COLORECTAL CANCER METASTATIC
     Route: 041
     Dates: start: 20130124, end: 20130124
  4. AFLIBERCEPT [Suspect]
     Indication: COLORECTAL CANCER METASTATIC
     Route: 041
     Dates: start: 20130124, end: 20130124
  5. DIFFLAM (BENZYDAMINE HYDROCHLORIDE) (BENZYDAMINE) [Concomitant]
  6. TAMSULOSIN [Concomitant]
  7. SIMPLE LINCTUS (CITRIC ACID) [Concomitant]
  8. PROCTOSEDYL (PROCTOSEDYL/01569101/) (HYDROCORTISONE, CINCHOCAINE HYDROCHLORIDE) [Concomitant]
  9. ANTISPASMOTICS (ANTISPASMODIC/ ANTICHOLINERGICS) (NULL) [Concomitant]
  10. CORTICOSTEROID NOS (CORTICOSTEROID NOS) (CORTICOSTEROID NOS) [Concomitant]
  11. ANALGESICS (ANALGESICS) [Concomitant]

REACTIONS (10)
  - Proctalgia [None]
  - Decubitus ulcer [None]
  - International normalised ratio increased [None]
  - Pleural effusion [None]
  - Pulmonary mass [None]
  - Metastases to lung [None]
  - Inflammation [None]
  - Pelvic fluid collection [None]
  - Neutropenic sepsis [None]
  - Blood lactic acid increased [None]
